FAERS Safety Report 6254838-9 (Version None)
Quarter: 2009Q3

REPORT INFORMATION
  Report Type: 
  Country: None (occurrence: None)
  Receive Date: 20090702
  Receipt Date: 20090624
  Transmission Date: 20100115
  Serious: Yes (Hospitalization)
  Sender: FDA-Public Use
  Company Number: PHHO2009TW05736

PATIENT
  Sex: Male
  Weight: 98.5 kg

DRUGS (8)
  1. BLINDED ALISKIREN ALI+TAB+CVR [Suspect]
     Indication: CARDIOVASCULAR DISORDER
     Dosage: UNK
  2. BLINDED NO TREATMENT RECEIVED NOMED [Suspect]
     Indication: CARDIOVASCULAR DISORDER
     Dosage: UNK
  3. BLINDED PLACEBO COMP-PLA+ [Suspect]
     Indication: CARDIOVASCULAR DISORDER
     Dosage: UNK
  4. DICLOFENAC [Suspect]
     Dosage: NO TREATMENT
  5. DICLOFENAC ^YUNG SHIN^ [Suspect]
     Indication: BACK PAIN
     Dosage: 50 MG, BID
     Route: 048
     Dates: start: 20090302, end: 20090321
  6. HERBAL PREPARATION [Suspect]
     Indication: OBESITY
     Dosage: UNK
     Route: 048
     Dates: start: 20090101, end: 20090421
  7. ACETAMINOPHEN [Concomitant]
     Indication: BACK PAIN
     Dosage: UNK
     Dates: start: 20090429, end: 20090430
  8. FOSINOPRIL SODIUM [Concomitant]

REACTIONS (11)
  - ARTERIOSCLEROSIS [None]
  - ASCITES [None]
  - BLOOD CREATININE INCREASED [None]
  - BLOOD UREA INCREASED [None]
  - DYSPNOEA [None]
  - GENERALISED OEDEMA [None]
  - GLOMERULONEPHRITIS MEMBRANOUS [None]
  - PROTEINURIA [None]
  - RENAL FAILURE ACUTE [None]
  - TUBULOINTERSTITIAL NEPHRITIS [None]
  - URINE OUTPUT DECREASED [None]
